FAERS Safety Report 7950063-1 (Version None)
Quarter: 2011Q4

REPORT INFORMATION
  Report Type: 
  Country: None (occurrence: None)
  Receive Date: 20111130
  Receipt Date: 20111123
  Transmission Date: 20120403
  Serious: Yes (Other)
  Sender: FDA-Public Use
  Company Number: CA-ROCHE-1008602

PATIENT

DRUGS (5)
  1. BENADRYL [Concomitant]
     Indication: PREMEDICATION
     Route: 048
     Dates: start: 20110216, end: 20110216
  2. RITUXAN [Suspect]
     Indication: WALDENSTROM'S MACROGLOBULINAEMIA
     Route: 042
     Dates: start: 20110125, end: 20110216
  3. ACETAMINOPHEN [Concomitant]
     Indication: PREMEDICATION
     Route: 048
     Dates: start: 20110216, end: 20110216
  4. DEXAMETHASONE [Concomitant]
     Indication: LYMPHOMA
     Route: 042
     Dates: start: 20110216, end: 20110216
  5. CHLORAMBUCIL [Concomitant]
     Indication: LYMPHOMA
     Route: 048
     Dates: start: 20110216, end: 20110220

REACTIONS (5)
  - HYPOTENSION [None]
  - PSYCHOMOTOR RETARDATION [None]
  - PYREXIA [None]
  - RASH PRURITIC [None]
  - NAUSEA [None]
